FAERS Safety Report 8068279-5 (Version None)
Quarter: 2012Q1

REPORT INFORMATION
  Report Type: 
  Country: None (occurrence: None)
  Receive Date: 20120124
  Receipt Date: 20111010
  Transmission Date: 20120608
  Serious: No
  Sender: FDA-Public Use
  Company Number: US-AMGEN-USASP2011052157

PATIENT
  Age: 69 Year
  Sex: Female

DRUGS (7)
  1. VITAMIN D [Concomitant]
     Dosage: 1 IU, UNK
  2. METOPROLOL TARTRATE [Concomitant]
     Dosage: 1 MG, UNK
  3. SYNTHROID [Concomitant]
     Dosage: 1 MUG, UNK
  4. PROLIA [Suspect]
     Indication: OSTEOPOROSIS POSTMENOPAUSAL
     Dosage: 60 MG, Q6MO
     Dates: start: 20111006
  5. TOVIAZ [Concomitant]
  6. TRIAMTERENE [Concomitant]
  7. CALCIUM [Concomitant]
     Dosage: 1 MG, UNK

REACTIONS (2)
  - OROPHARYNGEAL PAIN [None]
  - NASOPHARYNGITIS [None]
